FAERS Safety Report 18292434 (Version 2)
Quarter: 2020Q3

REPORT INFORMATION
  Report Type: Spontaneous
  Country: US (occurrence: US)
  Receive Date: 20200922
  Receipt Date: 20200924
  Transmission Date: 20201103
  Serious: No
  Sender: FDA-Public Use
  Company Number: US-BRISTOL-MYERS SQUIBB COMPANY-BMS-2020-077434

PATIENT
  Age: 84 Year
  Sex: Female

DRUGS (1)
  1. ORENCIA [Suspect]
     Active Substance: ABATACEPT
     Indication: ARTHRITIS
     Dosage: UNK UNK, QWK
     Route: 058
     Dates: start: 20200415

REACTIONS (3)
  - Accidental exposure to product [Unknown]
  - Application site bruise [Unknown]
  - Device leakage [Unknown]

NARRATIVE: CASE EVENT DATE: 202009
